FAERS Safety Report 6371784-0 (Version None)
Quarter: 2009Q3

REPORT INFORMATION
  Report Type: 
  Country: None (occurrence: None)
  Receive Date: 20090923
  Receipt Date: 20090819
  Transmission Date: 20100115
  Serious: Yes (Hospitalization)
  Sender: FDA-Public Use
  Company Number: CA-ASTRAZENECA-2009SE08895

PATIENT
  Age: 74 Year
  Sex: Female

DRUGS (28)
  1. NOLVADEX [Suspect]
     Route: 048
     Dates: start: 20040327, end: 20051206
  2. ARIMIDEX [Suspect]
     Route: 048
     Dates: start: 20051220
  3. CRESTOR [Suspect]
     Route: 048
  4. PLAQUENIL [Suspect]
  5. PLAQUENIL [Suspect]
  6. ALENDRONATE SODIUM [Concomitant]
     Dates: start: 20060120
  7. CALCIUM [Concomitant]
  8. COZAAR [Concomitant]
     Dates: start: 20040713
  9. TIAZAC [Concomitant]
     Dates: start: 20090201
  10. TIAZAC [Concomitant]
  11. VITAMIN D [Concomitant]
  12. PLAVIX [Concomitant]
     Dates: start: 20051205
  13. CAL-MAG [Concomitant]
     Dosage: 700-1050
  14. RANITIDINE [Concomitant]
  15. ASPIRIN [Concomitant]
     Dates: end: 20090122
  16. ASPIRIN [Concomitant]
     Dosage: 1 PILL
     Dates: start: 20090623
  17. PREDNISONE TAB [Concomitant]
     Dosage: 1-2 MG
  18. DIAZEPAM [Concomitant]
  19. ZOPICLONE [Concomitant]
  20. EMTEC [Concomitant]
     Dosage: 300MG/30
  21. TYLENOL (CAPLET) [Concomitant]
  22. FLONASE [Concomitant]
  23. DERMASONE/ FLUDICINE OINTMENT [Concomitant]
     Indication: RAYNAUD'S PHENOMENON
  24. EFUDEX [Concomitant]
     Indication: SKIN DISORDER
  25. CLOBEO [Concomitant]
     Indication: ORAL LICHEN PLANUS
  26. AMOXIL [Concomitant]
     Indication: TOOTH DISORDER
  27. SENOKOT 5 [Concomitant]
  28. DIOVOL AND TUMS [Concomitant]

REACTIONS (7)
  - ALOPECIA [None]
  - ARTHRALGIA [None]
  - ASTHENIA [None]
  - HAIR GROWTH ABNORMAL [None]
  - HOT FLUSH [None]
  - INSOMNIA [None]
  - TRANSIENT ISCHAEMIC ATTACK [None]
